FAERS Safety Report 9292784 (Version 1)
Quarter: 2013Q2

REPORT INFORMATION
  Report Type: Spontaneous
  Country: US (occurrence: US)
  Receive Date: 20130516
  Receipt Date: 20130516
  Transmission Date: 20140414
  Serious: No
  Sender: FDA-Public Use
  Company Number: US-TEVA-404858USA

PATIENT
  Age: 25 Year
  Sex: Female
  Weight: 49.94 kg

DRUGS (3)
  1. PLAN B ONE-STEP [Suspect]
     Indication: POST COITAL CONTRACEPTION
     Dosage: 1.5 MILLIGRAM DAILY;
     Route: 048
     Dates: start: 20130510, end: 20130510
  2. YASMIN [Concomitant]
     Indication: ORAL CONTRACEPTION
  3. AMOXICILLIN [Concomitant]
     Indication: DENTAL CARE

REACTIONS (1)
  - Rash pruritic [Not Recovered/Not Resolved]
